FAERS Safety Report 8419101 (Version 3)
Quarter: 2013Q2

REPORT INFORMATION
  Report Type: Report from Study
  Country: JP (occurrence: JP)
  Receive Date: 20120221
  Receipt Date: 20130425
  Transmission Date: 20140414
  Serious: Yes (Hospitalization)
  Sender: FDA-Public Use
  Company Number: JP-VERTEX PHARMACEUTICALS INC.-AE-2012-002356

PATIENT
  Age: 58 Year
  Sex: Female

DRUGS (12)
  1. VX-950 (TELAPREVIR) [Suspect]
     Indication: CHRONIC HEPATITIS C
     Dosage: 2250 MG, QD
     Route: 048
     Dates: start: 20120207, end: 20120209
  2. VX-950 (TELAPREVIR) [Suspect]
     Dosage: 1500 MG, QD
     Route: 048
     Dates: start: 20120223, end: 20120224
  3. PEGINTRON [Concomitant]
     Dosage: 1.5 ?G/KG, QW
     Route: 058
     Dates: start: 20120207, end: 20120214
  4. PEGINTRON [Concomitant]
     Dosage: 1.0 ?G/KG, QW
     Route: 058
     Dates: start: 20120223, end: 20120223
  5. REBETOL [Concomitant]
     Dosage: 600 MG, QD
     Route: 048
     Dates: start: 20120207, end: 20120209
  6. REBETOL [Concomitant]
     Dosage: 400 MG, QD
     Route: 048
     Dates: start: 20120223, end: 20120224
  7. FEROTYM [Concomitant]
     Dosage: 100 MG, QD
     Route: 048
     Dates: end: 20120224
  8. LASOPRAN OD [Concomitant]
     Dosage: 15 MG, QD
     Route: 048
     Dates: end: 20120224
  9. LASIX [Concomitant]
     Dosage: 20 MG, QD
     Route: 048
     Dates: end: 20120224
  10. MACACY A [Concomitant]
     Dosage: 25 MG, QD
     Route: 048
     Dates: end: 20120224
  11. EPADEL-S [Concomitant]
     Dosage: 1800 MG, QD
     Route: 048
     Dates: end: 20120224
  12. LIVALO [Concomitant]
     Dosage: 2 MG, QD
     Route: 048
     Dates: end: 20120224

REACTIONS (1)
  - Renal failure acute [Recovered/Resolved]
